FAERS Safety Report 5005988-6 (Version None)
Quarter: 2006Q2

REPORT INFORMATION
  Report Type: 
  Country: None (occurrence: None)
  Receive Date: 20060516
  Receipt Date: 20060501
  Transmission Date: 20061013
  Serious: Yes (Other)
  Sender: FDA-Public Use
  Company Number: A-US2005-10510

PATIENT
  Age: 28 Year
  Sex: Male

DRUGS (5)
  1. TRACLEER [Suspect]
     Indication: PULMONARY HYPERTENSION
     Dosage: 125 MG BID ORAL
     Route: 048
     Dates: start: 20021110
  2. COUMADIN [Concomitant]
  3. ADVAIR DISKUS 100/50 [Concomitant]
  4. SEREVENT [Concomitant]
  5. FLOVENT [Concomitant]

REACTIONS (4)
  - CONGENITAL CARDIOVASCULAR ANOMALY [None]
  - HYDROPS FOETALIS [None]
  - PREGNANCY OF PARTNER [None]
  - TRANSMISSION OF DRUG VIA SEMEN [None]
